FAERS Safety Report 5219252-3 (Version None)
Quarter: 2007Q1

REPORT INFORMATION
  Report Type: 
  Country: None (occurrence: None)
  Receive Date: 20070125
  Receipt Date: 20060117
  Transmission Date: 20070707
  Serious: Yes (Other)
  Sender: FDA-Public Use
  Company Number: GB-JNJFOC-20060604742

PATIENT
  Age: 56 Year
  Sex: Male

DRUGS (3)
  1. INFLIXIMAB [Suspect]
     Dosage: WEEK 6
     Route: 042
  2. INFLIXIMAB [Suspect]
     Dosage: WEEK 2
     Route: 042
  3. INFLIXIMAB [Suspect]
     Indication: PSORIASIS
     Dosage: WEEK 0
     Route: 042

REACTIONS (2)
  - ANAPLASTIC LARGE CELL LYMPHOMA T- AND NULL-CELL TYPES [None]
  - LYMPHOMATOID PAPULOSIS [None]
